FAERS Safety Report 5480120-3 (Version None)
Quarter: 2007Q4

REPORT INFORMATION
  Report Type: 
  Country: None (occurrence: None)
  Receive Date: 20071009
  Receipt Date: 20071001
  Transmission Date: 20080405
  Serious: Yes (Hospitalization)
  Sender: FDA-Public Use
  Company Number: PHBS2007ES16175

PATIENT
  Age: 78 Year
  Sex: Female

DRUGS (2)
  1. DIOVAN [Suspect]
     Indication: HYPERTENSION
     Dosage: 160MG, UNK
     Route: 048
     Dates: start: 20060101, end: 20060818
  2. AMERIDE [Suspect]
     Indication: HYPERTENSION
     Dosage: 5/50 MG, UNK
     Route: 048
     Dates: start: 20060101, end: 20060818

REACTIONS (1)
  - HYPONATRAEMIA [None]
